FAERS Safety Report 12934354 (Version 2)
Quarter: 2016Q4

REPORT INFORMATION
  Report Type: Report from Study
  Country: US (occurrence: US)
  Receive Date: 20161111
  Receipt Date: 20161123
  Transmission Date: 20170207
  Serious: Yes (Other)
  Sender: FDA-Public Use
  Company Number: US-MALLINCKRODT-T201605635

PATIENT
  Age: 58 Year
  Sex: Male

DRUGS (1)
  1. H.P. ACTHAR [Suspect]
     Active Substance: CORTICOTROPIN
     Indication: PROTEINURIA
     Dosage: .8ML 2X/WK (TUES. AND FRI.)
     Route: 058
     Dates: start: 20160401

REACTIONS (10)
  - Oedema peripheral [Recovered/Resolved]
  - Protein total increased [Not Recovered/Not Resolved]
  - Headache [Not Recovered/Not Resolved]
  - Sensitivity of teeth [Recovered/Resolved]
  - Hypokalaemia [Unknown]
  - Weight increased [Not Recovered/Not Resolved]
  - Hypertension [Not Recovered/Not Resolved]
  - Visual acuity reduced [Not Recovered/Not Resolved]
  - Tongue disorder [Recovered/Resolved]
  - Vision blurred [Not Recovered/Not Resolved]

NARRATIVE: CASE EVENT DATE: 2016
